FAERS Safety Report 24443291 (Version 1)
Quarter: 2024Q4

REPORT INFORMATION
  Report Type: Spontaneous
  Country: DE (occurrence: DE)
  Receive Date: 20241016
  Receipt Date: 20241016
  Transmission Date: 20250115
  Serious: Yes (Other)
  Sender: ACCORD
  Company Number: DE-Accord-448329

PATIENT
  Age: 74 Year
  Sex: Female

DRUGS (3)
  1. CAPECITABINE [Suspect]
     Active Substance: CAPECITABINE
     Indication: Colon cancer
     Dosage: STRENGTH: 2X 1500MG
     Dates: end: 20240923
  2. OXALIPLATIN [Suspect]
     Active Substance: OXALIPLATIN
     Indication: Colon cancer
     Dates: start: 20240723
  3. ELIQUIS [Concomitant]
     Active Substance: APIXABAN
     Indication: Thrombosis
     Dosage: STRENGTH: 5MG, 2X 1
     Dates: start: 20240905

REACTIONS (15)
  - Ataxia [Unknown]
  - Visual impairment [Recovered/Resolved]
  - Feeling cold [Recovered/Resolved]
  - Oropharyngeal pain [Recovered/Resolved]
  - Polyneuropathy [Recovered/Resolved]
  - Diarrhoea [Recovering/Resolving]
  - Extrasystoles [Recovering/Resolving]
  - Palpitations [Recovering/Resolving]
  - Nausea [Recovering/Resolving]
  - Decreased appetite [Recovering/Resolving]
  - Asthenopia [Recovered/Resolved]
  - Limb discomfort [Recovered/Resolved]
  - Tremor [Unknown]
  - Tunnel vision [Recovered/Resolved]
  - Acute respiratory distress syndrome [Recovered/Resolved]
